FAERS Safety Report 6401929-5 (Version None)
Quarter: 2009Q4

REPORT INFORMATION
  Report Type: 
  Country: None (occurrence: None)
  Receive Date: 20091015
  Receipt Date: 20091009
  Transmission Date: 20100525
  Serious: Yes (Other)
  Sender: FDA-Public Use
  Company Number: A0803877A

PATIENT
  Sex: Male

DRUGS (2)
  1. COREG [Suspect]
     Indication: ATRIAL FIBRILLATION
     Route: 065
  2. LEVOTHYROXINE SODIUM [Suspect]
     Route: 065

REACTIONS (7)
  - ATRIAL FIBRILLATION [None]
  - BLOOD PRESSURE DIASTOLIC DECREASED [None]
  - CARDIAC DISORDER [None]
  - CARDIAC FAILURE [None]
  - DIZZINESS POSTURAL [None]
  - FATIGUE [None]
  - NONSPECIFIC REACTION [None]
